FAERS Safety Report 21847902 (Version 1)
Quarter: 2023Q1

REPORT INFORMATION
  Report Type: Spontaneous
  Country: US (occurrence: US)
  Receive Date: 20230111
  Receipt Date: 20230111
  Transmission Date: 20230418
  Serious: Yes (Hospitalization, Other)
  Sender: FDA-Public Use
  Company Number: US-MACLEODS PHARMACEUTICALS US LTD-MAC2022039127

PATIENT

DRUGS (7)
  1. OLANZAPINE [Interacting]
     Active Substance: OLANZAPINE
     Indication: Schizophrenia
     Dosage: 40 MILLIGRAM, QD (OLANZAPINE WAS TITRATED TO 40 MG/DAY ON DAY 6 OF HOSPITALIZATION)
     Route: 065
  2. OLANZAPINE [Interacting]
     Active Substance: OLANZAPINE
     Dosage: 30 MILLIGRAM QD
     Route: 065
  3. OLANZAPINE [Interacting]
     Active Substance: OLANZAPINE
     Dosage: 5 MILLIGRAM QD
     Route: 065
  4. OLANZAPINE [Interacting]
     Active Substance: OLANZAPINE
     Dosage: UNK (OLANZAPINE WAS TITRATED TO 40 MG/DAY ON DAY 6 OF HOSPITALIZATION)
     Route: 065
  5. CLOZAPINE [Interacting]
     Active Substance: CLOZAPINE
     Indication: Schizophrenia
     Dosage: UNK (TITRATED UP TO 250 MG/DAY WITH A REDUCTION OF OLANZAPINE DOSE TO 30 MG/DAY IN THE HOSPITAL)
     Route: 065
  6. CLOZAPINE [Interacting]
     Active Substance: CLOZAPINE
     Dosage: 250 MILLIGRAM, QD
     Route: 065
  7. CLOZAPINE [Interacting]
     Active Substance: CLOZAPINE
     Dosage: 12.5 MILLIGRAM
     Route: 065

REACTIONS (6)
  - Memory impairment [Recovered/Resolved]
  - Agitation [Recovered/Resolved]
  - Disorientation [Recovered/Resolved]
  - Somnolence [Recovered/Resolved]
  - Disturbance in attention [Recovered/Resolved]
  - Drug interaction [Recovered/Resolved]
